FAERS Safety Report 19760506 (Version 1)
Quarter: 2021Q3

REPORT INFORMATION
  Report Type: Spontaneous
  Country: CH (occurrence: CH)
  Receive Date: 20210830
  Receipt Date: 20210830
  Transmission Date: 20211014
  Serious: Yes (Other)
  Sender: FDA-Public Use
  Company Number: CH-HBP-2021CH022678

PATIENT
  Age: 57 Year
  Sex: Male
  Weight: 101 kg

DRUGS (22)
  1. ALDACTONE [Concomitant]
     Active Substance: SPIRONOLACTONE
     Dosage: 100 MILLIGRAM, QD (1?0?0)
     Route: 065
  2. SPIRICORT [Concomitant]
     Active Substance: PREDNISOLONE
     Indication: NEOPLASM
     Dosage: 50 MILLIGRAM, BID (2?0?0?0)
     Route: 065
  3. ZYLORIC [Concomitant]
     Active Substance: ALLOPURINOL
     Dosage: 300 MILLIGRAM, QD (1?0?0?0)
     Route: 065
  4. LASIX [Concomitant]
     Active Substance: FUROSEMIDE
     Dosage: 20 MILLIGRAM, BID (1?1?0)
     Route: 065
  5. DOXORUBICIN [Concomitant]
     Active Substance: DOXORUBICIN
     Dosage: UNK, UNKNOWN
     Route: 042
     Dates: start: 20210707, end: 20210707
  6. METHADONE [Suspect]
     Active Substance: METHADONE HYDROCHLORIDE
     Indication: PRODUCT SUBSTITUTION
     Dosage: 80 MILLIGRAM, QD
  7. QUETIAPIN [Suspect]
     Active Substance: QUETIAPINE
     Indication: PRODUCT SUBSTITUTION
     Dosage: 50 MILLIGRAM, 2?1?2?1 (DAY)
  8. CALCIUM +D3 [Concomitant]
     Active Substance: CALCIUM\CHOLECALCIFEROL
     Dosage: UNK UNK., QD (1?0?0)
     Route: 065
  9. MABTHERA [Concomitant]
     Active Substance: RITUXIMAB
     Dosage: 790 MILLIGRAM, UNKNOWN
     Route: 065
     Dates: start: 20210707, end: 20210707
  10. DILATREND [Concomitant]
     Active Substance: CARVEDILOL
     Dosage: 12.5 MILLIGRAM, QD (1?0?0)
     Route: 065
  11. VALTREX [Concomitant]
     Active Substance: VALACYCLOVIR HYDROCHLORIDE
     Indication: PROPHYLAXIS
     Dosage: 500 MILLIGRAM, BID (1?0?1)
     Route: 065
  12. KONAKION [Concomitant]
     Active Substance: PHYTONADIONE
     Dosage: 10 MILLIGRAM, QD (1?0?0)
     Route: 042
  13. AKYNZEO [Suspect]
     Active Substance: NETUPITANT\PALONOSETRON HYDROCHLORIDE
     Indication: PROPHYLAXIS OF NAUSEA AND VOMITING
     Dosage: 1 DOSAGE FORM, SINGLE
     Route: 048
     Dates: start: 20210707, end: 20210707
  14. BACTRIM [Concomitant]
     Active Substance: SULFAMETHOXAZOLE\TRIMETHOPRIM
     Indication: PROPHYLAXIS
     Dosage: UNK UNK., 3/WEEK
     Route: 065
  15. DUPHALAC [Concomitant]
     Active Substance: LACTULOSE
     Indication: CONSTIPATION
     Dosage: 20 MILLILITER, UNKNOWN (4TIMES DAILY)
     Route: 065
  16. ENDOXAN                            /00021101/ [Concomitant]
     Active Substance: CYCLOPHOSPHAMIDE
     Dosage: 1590 MILLIGRAM, UNKNOWN
     Route: 065
     Dates: start: 20210707, end: 20210707
  17. METOLAZON [Concomitant]
     Active Substance: METOLAZONE
     Dosage: 2.5 MILLIGRAM, QD (1?0?0)
     Route: 065
  18. PANTOZOL [Concomitant]
     Active Substance: PANTOPRAZOLE SODIUM
     Indication: PROPHYLAXIS
     Dosage: 40 MILLIGRAM, UNKNOWN
     Route: 065
  19. TEMESTA                            /00273201/ [Concomitant]
     Active Substance: LORAZEPAM
     Dosage: 1 MILLIGRAM, UNKNOWN (0?0?0?1.5)
     Route: 065
  20. BILAXTEN [Concomitant]
     Active Substance: BILASTINE
     Indication: PREMEDICATION
     Dosage: 20 MILLIGRAM, SINGLE
     Route: 065
     Dates: start: 20210707, end: 20210707
  21. DAFALGAN [Concomitant]
     Active Substance: ACETAMINOPHEN
     Indication: PREMEDICATION
     Dosage: 1 GRAM, SINGLE
     Route: 065
     Dates: start: 20210707, end: 20210707
  22. VINCRISTINE [Concomitant]
     Active Substance: VINCRISTINE
     Dosage: 2 MILLIGRAM, UNKNOWN
     Route: 042
     Dates: start: 20210707, end: 20210707

REACTIONS (3)
  - Fatigue [Recovered/Resolved]
  - Respiratory depression [Recovered/Resolved]
  - Somnolence [Recovered/Resolved]

NARRATIVE: CASE EVENT DATE: 20210708
